FAERS Safety Report 7279674-6 (Version None)
Quarter: 2011Q1

REPORT INFORMATION
  Report Type: 
  Country: None (occurrence: None)
  Receive Date: 20110203
  Receipt Date: 20110203
  Transmission Date: 20110831
  Serious: Yes (Disabling, Other)
  Sender: FDA-Public Use
  Company Number: None

PATIENT
  Age: 58 Year
  Sex: Female
  Weight: 72.5755 kg

DRUGS (1)
  1. DIOVAN [Suspect]
     Indication: HYPERTENSION
     Dosage: 1 TABLET DAILY PO
     Route: 048
     Dates: start: 20091030, end: 20101220

REACTIONS (6)
  - BLISTER [None]
  - DIARRHOEA [None]
  - IMPAIRED WORK ABILITY [None]
  - JOINT SWELLING [None]
  - PAIN [None]
  - OEDEMA PERIPHERAL [None]
